FAERS Safety Report 25995534 (Version 4)
Quarter: 2025Q4

REPORT INFORMATION
  Report Type: Spontaneous
  Country: US (occurrence: US)
  Receive Date: 20251104
  Receipt Date: 20251203
  Transmission Date: 20260118
  Serious: No
  Sender: UROGEN PHARMA
  Company Number: US-UROGEN PHARMA LTD.-2025-UGN-000195

PATIENT

DRUGS (2)
  1. ZUSDURI [Suspect]
     Active Substance: MITOMYCIN
     Indication: Bladder transitional cell carcinoma
     Dosage: UNK, ONCE A WEEK,(INSTILLATION)
     Dates: start: 20251008, end: 20251008
  2. ZUSDURI [Suspect]
     Active Substance: MITOMYCIN
     Dosage: UNK, ONCE A WEEK,(INSTILLATION)
     Dates: start: 20251015, end: 20251015

REACTIONS (3)
  - Urethral haemorrhage [Not Recovered/Not Resolved]
  - Complication associated with device [Recovered/Resolved]
  - Complication associated with device [Not Recovered/Not Resolved]

NARRATIVE: CASE EVENT DATE: 20251015
